FAERS Safety Report 5418272-3 (Version None)
Quarter: 2007Q3

REPORT INFORMATION
  Report Type: 
  Country: None (occurrence: None)
  Receive Date: 20070817
  Receipt Date: 20070808
  Transmission Date: 20080115
  Serious: Yes (Other)
  Sender: FDA-Public Use
  Company Number: B0482857A

PATIENT
  Sex: Female

DRUGS (6)
  1. PAROXETINE HCL [Suspect]
     Dosage: 20MG PER DAY
     Route: 048
     Dates: start: 20070401
  2. ANAFRANIL [Concomitant]
     Dosage: 75MG PER DAY
     Route: 048
  3. LEXOMIL [Concomitant]
     Dosage: 3MG PER DAY
     Route: 048
     Dates: start: 20070401
  4. TRANDATE [Concomitant]
     Dosage: 100MG TWICE PER DAY
     Route: 048
     Dates: start: 20070323, end: 20070614
  5. LOXEN [Concomitant]
     Route: 065
     Dates: start: 20070614
  6. ASPEGIC 325 [Concomitant]
     Dosage: 100MG PER DAY
     Route: 048
     Dates: start: 20070420, end: 20070518

REACTIONS (2)
  - COMPLICATION OF PREGNANCY [None]
  - DRUG EXPOSURE DURING PREGNANCY [None]
